FAERS Safety Report 11561071 (Version 3)
Quarter: 2015Q4

REPORT INFORMATION
  Report Type: Report from Study
  Country: AU (occurrence: AU)
  Receive Date: 20150928
  Receipt Date: 20151027
  Transmission Date: 20160304
  Serious: Yes (Hospitalization, Other)
  Sender: FDA-Public Use
  Company Number: PHHY2015AU115570

PATIENT
  Age: 59 Year
  Sex: Female
  Weight: 84 kg

DRUGS (4)
  1. COSENTYX [Suspect]
     Active Substance: SECUKINUMAB
     Indication: PSORIASIS
     Dosage: 300 MG, EVERY WEEK FOR 0-4 THEN MONTHLY
     Route: 058
     Dates: start: 20150730
  2. ROSUVASTATIN [Concomitant]
     Active Substance: ROSUVASTATIN
     Indication: HYPERCHOLESTEROLAEMIA
     Dosage: 40 MG, UNK
     Route: 048
  3. NAPROXEN. [Concomitant]
     Active Substance: NAPROXEN
     Indication: ARTHRALGIA
     Dosage: 500 MG, BID
     Route: 048
  4. GLUCOVANCE [Concomitant]
     Active Substance: GLYBURIDE\METFORMIN HYDROCHLORIDE
     Indication: DIABETES MELLITUS
     Dosage: 500/125 UKN, BID
     Route: 048

REACTIONS (3)
  - Meningitis viral [Recovered/Resolved]
  - Inappropriate schedule of drug administration [Unknown]
  - Malaise [Unknown]

NARRATIVE: CASE EVENT DATE: 20150919
